FAERS Safety Report 9324421 (Version 2)
Quarter: 2013Q2

REPORT INFORMATION
  Report Type: Spontaneous
  Country: US (occurrence: US)
  Receive Date: 20130603
  Receipt Date: 20130605
  Transmission Date: 20140414
  Serious: Yes (Other)
  Sender: FDA-Public Use
  Company Number: US-BAYER-2013-064413

PATIENT
  Age: 25 Year
  Sex: Female

DRUGS (1)
  1. MIRENA [Suspect]
     Indication: CONTRACEPTION
     Dosage: 20 MCG/24HR, CONT
     Route: 015
     Dates: start: 200812, end: 201304

REACTIONS (8)
  - Pregnancy with contraceptive device [None]
  - Device dislocation [None]
  - Device issue [None]
  - Drug ineffective [None]
  - Abortion spontaneous [None]
  - Pain [None]
  - Malaise [None]
  - Weight decreased [None]
